FAERS Safety Report 10695668 (Version 1)
Quarter: 2015Q1

REPORT INFORMATION
  Report Type: Spontaneous
  Country: US (occurrence: None)
  Receive Date: 20150106
  Receipt Date: 20150106
  Transmission Date: 20150721
  Serious: Yes (Disabling)
  Sender: FDA-Public Use
  Company Number: None

PATIENT
  Age: 38 Year
  Sex: Male
  Weight: 122.02 kg

DRUGS (1)
  1. LISINOPRIL. [Suspect]
     Active Substance: LISINOPRIL
     Indication: BLOOD PRESSURE
     Dosage: 1 PILL, ONCE DAILY, TAKEN BY MOUTH?
     Route: 048
     Dates: start: 20141207, end: 20150101

REACTIONS (4)
  - Multiple sclerosis [None]
  - Product substitution issue [None]
  - Seizure [None]
  - Disease progression [None]

NARRATIVE: CASE EVENT DATE: 20141207
